FAERS Safety Report 10449934 (Version 2)
Quarter: 2014Q3

REPORT INFORMATION
  Report Type: Spontaneous
  Country: US (occurrence: US)
  Receive Date: 20140912
  Receipt Date: 20140912
  Transmission Date: 20150326
  Serious: Yes (Other)
  Sender: FDA-Public Use
  Company Number: US-INCYTE CORPORATION-2014IN001333

PATIENT
  Age: 83 Year
  Sex: Female
  Weight: 70.7 kg

DRUGS (3)
  1. JAKAFI [Suspect]
     Active Substance: RUXOLITINIB
     Indication: MYELOPROLIFERATIVE DISORDER
     Dosage: 10 MG, BID
     Route: 048
     Dates: start: 20130218
  2. ASA [Concomitant]
     Active Substance: ASPIRIN
  3. CALTRATE +D                        /07451701/ [Concomitant]

REACTIONS (2)
  - Anaemia [Recovering/Resolving]
  - Dysgeusia [Recovering/Resolving]

NARRATIVE: CASE EVENT DATE: 20130218
